FAERS Safety Report 7964506-0 (Version None)
Quarter: 2011Q4

REPORT INFORMATION
  Report Type: 
  Country: None (occurrence: None)
  Receive Date: 20111208
  Receipt Date: 20111202
  Transmission Date: 20120403
  Serious: Yes (Other)
  Sender: FDA-Public Use
  Company Number: BR-PFIZER INC-2011045624

PATIENT
  Age: 67 Year
  Sex: Female
  Weight: 63 kg

DRUGS (6)
  1. XALATAN [Suspect]
     Indication: GLAUCOMA
     Dosage: 3 UG (1 DROP IN EACH EYE), 1X/DAY
     Route: 047
     Dates: start: 20090101
  2. SPIRIVA [Concomitant]
     Indication: DYSPNOEA
     Dosage: UNK
  3. XALATAN [Suspect]
     Indication: INTRAOCULAR PRESSURE INCREASED
  4. AZOPT [Concomitant]
     Indication: GLAUCOMA
     Dosage: UNK, TWICE DAILY IN RIGHT EYE
     Route: 047
  5. AZOPT [Concomitant]
     Indication: INTRAOCULAR PRESSURE INCREASED
  6. ALENIA [Concomitant]
     Indication: DYSPNOEA
     Dosage: UNK

REACTIONS (5)
  - INTRAOCULAR PRESSURE INCREASED [None]
  - FATIGUE [None]
  - EYE PAIN [None]
  - FOREIGN BODY SENSATION IN EYES [None]
  - ASTHMA [None]
